FAERS Safety Report 5831751-X (Version None)
Quarter: 2008Q3

REPORT INFORMATION
  Report Type: 
  Country: None (occurrence: None)
  Receive Date: 20080803
  Receipt Date: 20080724
  Transmission Date: 20090109
  Serious: Yes (Other)
  Sender: FDA-Public Use
  Company Number: PHHY2008BR15268

PATIENT
  Age: 83 Year
  Sex: Female

DRUGS (1)
  1. EXELON [Suspect]
     Dosage: 3 MG
     Route: 048

REACTIONS (4)
  - BLOOD BILIRUBIN DECREASED [None]
  - HEPATIC ENZYME ABNORMAL [None]
  - HEPATOMEGALY [None]
  - VOMITING [None]
